FAERS Safety Report 17004493 (Version 4)
Quarter: 2020Q4

REPORT INFORMATION
  Report Type: Spontaneous
  Country: US (occurrence: US)
  Receive Date: 20191107
  Receipt Date: 20201215
  Transmission Date: 20210113
  Serious: No
  Sender: FDA-Public Use
  Company Number: US-PFIZER INC-2019475818

PATIENT
  Age: 68 Year
  Sex: Female
  Weight: 59.87 kg

DRUGS (3)
  1. LYRICA [Suspect]
     Active Substance: PREGABALIN
     Indication: NEURALGIA
     Dosage: 75 MG, 3X/DAY
     Route: 048
  2. ZOLPIDEM [Concomitant]
     Active Substance: ZOLPIDEM TARTRATE
     Indication: SLEEP DISORDER
     Dosage: 10 MG
  3. ZOLPIDEM [Concomitant]
     Active Substance: ZOLPIDEM TARTRATE
     Dosage: 2.5 MG, AS NEEDED (0.5 TABLET BY MOUTH AS NEEDED BUT DIRECTIONS ON THE BOTTLE IS 1 TABLET AS NEEDED)
     Route: 048

REACTIONS (2)
  - Intentional product misuse [Unknown]
  - Insomnia [Not Recovered/Not Resolved]
